FAERS Safety Report 8578564 (Version 2)
Quarter: 2012Q4

REPORT INFORMATION
  Report Type: Spontaneous
  Country: FR (occurrence: None)
  Receive Date: 20120517
  Receipt Date: 20120820
  Transmission Date: 20130627
  Serious: Yes (Death, Hospitalization, Other)
  Sender: FDA-Public Use
  Company Number: 217374

PATIENT
  Sex: Female

DRUGS (10)
  1. INNOHEP [Suspect]
     Indication: PRODUCT USED FOR UNKNOWN INDICATION
     Dosage: 10000 IU, SUBCUTANEOUS
     Route: 058
     Dates: end: 20120406
  2. SUTENT [Suspect]
     Indication: METASTATIC RENAL CELL CARCINOMA
     Dosage: 25 MG, ORAL
     Route: 048
     Dates: end: 20120406
  3. EXFORGE (AMLODIPINE W/VALSARTAN) (TABLET) [Concomitant]
  4. MORPHINE SULFATE [Concomitant]
  5. XANAX [Concomitant]
  6. IMOVANE (ZOPICLONE) [Concomitant]
  7. ATHYMIL (MANSERIN HYDROCHLORIDE) [Concomitant]
  8. INEXIUM (ESOMEPARZOLE MAGNESIUM) [Concomitant]
  9. FERROUS SULFATE [Concomitant]
  10. DURAGESIC [Concomitant]

REACTIONS (11)
  - Disturbance in attention [None]
  - Haemoglobin decreased [None]
  - Blood sodium decreased [None]
  - Loss of consciousness [None]
  - Therapeutic response unexpected [None]
  - Haemorrhage intracranial [None]
  - Hypotonia [None]
  - Cerebral haemorrhage [None]
  - Coma [None]
  - Miosis [None]
  - Respiratory distress [None]
